FAERS Safety Report 6651339-0 (Version None)
Quarter: 2010Q1

REPORT INFORMATION
  Report Type: 
  Country: None (occurrence: None)
  Receive Date: 20100325
  Receipt Date: 20100316
  Transmission Date: 20100710
  Serious: Yes (Other)
  Sender: FDA-Public Use
  Company Number: B0637936A

PATIENT
  Sex: Male

DRUGS (8)
  1. BETNOVATE [Suspect]
     Route: 065
     Dates: start: 20070101
  2. PROCHLORPERAZINE [Suspect]
     Indication: VERTIGO
     Route: 065
     Dates: start: 20070101
  3. PHENERGAN HCL [Suspect]
     Indication: DRUG USE FOR UNKNOWN INDICATION
     Route: 065
  4. STEMETIL [Suspect]
     Indication: VERTIGO
     Route: 065
  5. FUCIBET [Suspect]
     Indication: DRUG USE FOR UNKNOWN INDICATION
     Route: 065
     Dates: start: 20091230
  6. TETANUS INJECTION [Suspect]
     Indication: DRUG USE FOR UNKNOWN INDICATION
     Route: 065
  7. LIPITOR [Suspect]
     Indication: DRUG USE FOR UNKNOWN INDICATION
     Route: 065
  8. OMEPRAZOLE [Suspect]
     Indication: DRUG USE FOR UNKNOWN INDICATION
     Route: 065

REACTIONS (12)
  - BLOOD CHOLESTEROL INCREASED [None]
  - CONDITION AGGRAVATED [None]
  - CONSTIPATION [None]
  - DRUG INEFFECTIVE [None]
  - HYPERSENSITIVITY [None]
  - INSOMNIA [None]
  - PRURITUS [None]
  - PUSTULAR PSORIASIS [None]
  - RASH PAPULAR [None]
  - RASH PRURITIC [None]
  - RASH PUSTULAR [None]
  - SWELLING [None]
